FAERS Safety Report 4591164-8 (Version None)
Quarter: 2005Q1

REPORT INFORMATION
  Report Type: 
  Country: None (occurrence: None)
  Receive Date: 20050218
  Receipt Date: 20050207
  Transmission Date: 20050727
  Serious: Yes (Hospitalization)
  Sender: FDA-Public Use
  Company Number: FRP04001011

PATIENT
  Age: 82 Year
  Sex: Female
  Weight: 57 kg

DRUGS (10)
  1. ACTONEL [Suspect]
     Dosage: 35 MG 1/WEEK ORAL
     Route: 048
     Dates: end: 20040521
  2. CACIT D3 (CALCIUM CARBONATE, COLECALCIFEROL) EFFERVESCENT GRANULES [Suspect]
     Dosage: 1000MG DAILY ORAL
     Route: 048
  3. CALCIUM CARBONATE W/CHOLECALCIFEROL/SODIUM(COLECALCIFEROL, CALCIUM CAR [Suspect]
     Dosage: ORAL
     Route: 048
  4. KARDEGIC [Concomitant]
  5. SOTALOL HCL [Concomitant]
  6. LIPANTHYL ^BRISOL-MYERS SQUIBB^ (FENOFIBRATE) [Concomitant]
  7. STILNOX /FRA/(ZOLPIDEM) [Concomitant]
  8. FORLAX (MACROGOL) [Concomitant]
  9. PHYSIOTENS ^GIULINI^ MOXONIDINE [Concomitant]
  10. ISKEDYL (DIHYDROERGOCRISTINE MESILATE, RAUBASINE) [Concomitant]

REACTIONS (3)
  - ACUTE PULMONARY OEDEMA [None]
  - HYPERCALCAEMIA [None]
  - HYPOCALCIURIA [None]
